FAERS Safety Report 17413805 (Version 1)
Quarter: 2020Q1

REPORT INFORMATION
  Report Type: Spontaneous
  Country: US (occurrence: US)
  Receive Date: 20200130
  Receipt Date: 20200130
  Transmission Date: 20200409
  Serious: No
  Sender: FDA-Public Use
  Company Number: None

PATIENT
  Age: 67 Year
  Sex: Male

DRUGS (1)
  1. ASPIRIN (ASPIRIN 325MG TAB) [Suspect]
     Active Substance: ASPIRIN
     Indication: HEADACHE
     Dosage: ?          OTHER DOSE:325-650 MG;?
     Route: 048
     Dates: start: 20190914, end: 20190914

REACTIONS (5)
  - Haematemesis [None]
  - Gastritis [None]
  - Haemorrhage [None]
  - Erosive duodenitis [None]
  - Diarrhoea [None]

NARRATIVE: CASE EVENT DATE: 20190914
